FAERS Safety Report 9956271 (Version 1)
Quarter: 2014Q1

REPORT INFORMATION
  Report Type: Report from Study
  Country: US (occurrence: US)
  Receive Date: 20140304
  Receipt Date: 20140304
  Transmission Date: 20141002
  Serious: No
  Sender: FDA-Public Use
  Company Number: US-ABBVIE-13P-163-1086025-00

PATIENT
  Age: 33 Year
  Sex: Female

DRUGS (2)
  1. HUMIRA [Suspect]
     Indication: PSORIASIS
     Dates: start: 20130428, end: 20130428
  2. HUMIRA [Suspect]
     Dates: start: 20130513

REACTIONS (10)
  - Asthenia [Recovering/Resolving]
  - Malaise [Recovering/Resolving]
  - Pain [Recovering/Resolving]
  - Oropharyngeal pain [Recovering/Resolving]
  - Lymph node pain [Recovering/Resolving]
  - Lymphadenopathy [Recovering/Resolving]
  - Increased upper airway secretion [Recovering/Resolving]
  - Tearfulness [Unknown]
  - Nervousness [Unknown]
  - Cough [Recovering/Resolving]
